FAERS Safety Report 4982702-1 (Version None)
Quarter: 2006Q2

REPORT INFORMATION
  Report Type: 
  Country: None (occurrence: None)
  Receive Date: 20060425
  Receipt Date: 20050914
  Transmission Date: 20061013
  Serious: Yes (Hospitalization)
  Sender: FDA-Public Use
  Company Number: US-MERCK-0509USA02105

PATIENT
  Age: 56 Year
  Sex: Female
  Weight: 100 kg

DRUGS (3)
  1. VIOXX [Suspect]
     Indication: SYSTEMIC LUPUS ERYTHEMATOSUS
     Route: 048
     Dates: start: 20001001, end: 20010101
  2. VIOXX [Suspect]
     Indication: TENDON DISORDER
     Route: 048
     Dates: start: 20001001, end: 20010101
  3. IBUPROFEN [Concomitant]
     Route: 065

REACTIONS (12)
  - ARTHRALGIA [None]
  - ATRIAL FLUTTER [None]
  - DEEP VEIN THROMBOSIS [None]
  - DEPRESSION [None]
  - HORMONE LEVEL ABNORMAL [None]
  - INSOMNIA [None]
  - JOINT INJURY [None]
  - LIGAMENT INJURY [None]
  - PULMONARY EMBOLISM [None]
  - PYREXIA [None]
  - SINUS DISORDER [None]
  - TENDON DISORDER [None]
